FAERS Safety Report 8481435-7 (Version None)
Quarter: 2012Q3

REPORT INFORMATION
  Report Type: 
  Country: None (occurrence: None)
  Receive Date: 20120702
  Receipt Date: 20120618
  Transmission Date: 20120928
  Serious: Yes (Other)
  Sender: FDA-Public Use
  Company Number: US-ASTELLAS-2012US005833

PATIENT

DRUGS (4)
  1. ERLOTINIB HYDROCHLORIDE [Suspect]
     Indication: BILE DUCT CANCER
  2. DOCETAXEL [Suspect]
     Indication: HEPATIC NEOPLASM MALIGNANT
     Dosage: 30 MG/M2, DAYS 1, 8 AND 15
  3. DOCETAXEL [Suspect]
     Indication: BILE DUCT CANCER
  4. ERLOTINIB HYDROCHLORIDE [Suspect]
     Indication: HEPATIC NEOPLASM MALIGNANT
     Dosage: 150 MG, DAYS 2-7, 9-14, 16-28 OF EACH 28-DAY CYCLE
     Route: 048

REACTIONS (2)
  - WHITE BLOOD CELL DISORDER [None]
  - OFF LABEL USE [None]
